FAERS Safety Report 5751044-9 (Version None)
Quarter: 2008Q2

REPORT INFORMATION
  Report Type: 
  Country: None (occurrence: None)
  Receive Date: 20080528
  Receipt Date: 20080522
  Transmission Date: 20081010
  Serious: Yes (Hospitalization)
  Sender: FDA-Public Use
  Company Number: FR-AVENTIS-200713146FR

PATIENT
  Age: 74 Year
  Sex: Male

DRUGS (1)
  1. ARAVA [Suspect]
     Route: 048

REACTIONS (2)
  - LUNG INFECTION [None]
  - RESPIRATORY DISTRESS [None]
